FAERS Safety Report 8367500-3 (Version None)
Quarter: 2012Q2

REPORT INFORMATION
  Report Type: 
  Country: None (occurrence: None)
  Receive Date: 20120517
  Receipt Date: 20120327
  Transmission Date: 20120825
  Serious: No
  Sender: FDA-Public Use
  Company Number: US-GLAXOSMITHKLINE-A0971929A

PATIENT
  Age: 55 Year
  Sex: Female
  Weight: 71.4 kg

DRUGS (6)
  1. VOTRIENT [Suspect]
     Indication: PRODUCT USED FOR UNKNOWN INDICATION
     Dosage: 800MG PER DAY
     Route: 048
  2. LEVOTHYROXINE SODIUM [Concomitant]
     Route: 048
  3. PRILOSEC [Concomitant]
     Route: 048
  4. LISINOPRIL AND HYDROCHLOROTHIAZIDE [Concomitant]
  5. CORTEF [Concomitant]
     Route: 048
  6. VERAPAMIL [Concomitant]
     Route: 048

REACTIONS (2)
  - FEELING HOT [None]
  - MUSCULAR WEAKNESS [None]
